FAERS Safety Report 6553504-X (Version None)
Quarter: 2010Q1

REPORT INFORMATION
  Report Type: 
  Country: None (occurrence: None)
  Receive Date: 20100127
  Receipt Date: 20100121
  Transmission Date: 20100710
  Serious: Yes (Death, Other)
  Sender: FDA-Public Use
  Company Number: US-CELGENEUS-163-50794-10011677

PATIENT
  Sex: Male

DRUGS (2)
  1. VIDAZA [Suspect]
     Route: 058
     Dates: start: 20091231, end: 20100106
  2. VIDAZA [Suspect]

REACTIONS (3)
  - DEATH [None]
  - PSEUDOMONAL SEPSIS [None]
  - WHITE BLOOD CELL COUNT INCREASED [None]
